FAERS Safety Report 5482221-2 (Version None)
Quarter: 2007Q4

REPORT INFORMATION
  Report Type: 
  Country: None (occurrence: None)
  Receive Date: 20071011
  Receipt Date: 20071003
  Transmission Date: 20080405
  Serious: Yes (Hospitalization, Other)
  Sender: FDA-Public Use
  Company Number: FR-JNJFOC-20070904672

PATIENT
  Age: 54 Year
  Sex: Female
  Weight: 100 kg

DRUGS (6)
  1. REMICADE [Suspect]
     Route: 042
  2. REMICADE [Suspect]
     Indication: RHEUMATOID ARTHRITIS
     Route: 042
  3. CORTICOSTEROIDS [Concomitant]
     Indication: RHEUMATOID ARTHRITIS
  4. NOVATREX [Concomitant]
     Indication: RHEUMATOID ARTHRITIS
     Route: 048
  5. CORTANCYL [Concomitant]
     Indication: RHEUMATOID ARTHRITIS
     Route: 048
  6. ODRIK [Concomitant]

REACTIONS (3)
  - ACUTE CORONARY SYNDROME [None]
  - CARDIOMYOPATHY [None]
  - INFUSION RELATED REACTION [None]
